FAERS Safety Report 14148097 (Version 1)
Quarter: 2017Q4

REPORT INFORMATION
  Report Type: Spontaneous
  Country: US (occurrence: US)
  Receive Date: 20171101
  Receipt Date: 20171101
  Transmission Date: 20180321
  Serious: No
  Sender: FDA-Public Use
  Company Number: US-PFIZER INC-2017469748

PATIENT
  Age: 20 Year
  Sex: Male
  Weight: 66.68 kg

DRUGS (4)
  1. ATENOLOL. [Concomitant]
     Active Substance: ATENOLOL
     Indication: CARDIOMYOPATHY
     Dosage: 25 MG, 2X/DAY
     Route: 048
  2. BICILLIN L-A [Suspect]
     Active Substance: PENICILLIN G BENZATHINE
     Indication: AUTOIMMUNE DISORDER
     Dosage: 2ML INJECTION ONCE A MONTH
     Dates: start: 20171013
  3. BICILLIN L-A [Suspect]
     Active Substance: PENICILLIN G BENZATHINE
     Indication: PROPHYLAXIS
  4. ZYRTEC [Concomitant]
     Active Substance: CETIRIZINE HYDROCHLORIDE
     Indication: SEASONAL ALLERGY
     Dosage: 10 MG, 1X/DAY
     Route: 048

REACTIONS (2)
  - Injection site pain [Recovered/Resolved]
  - Accidental underdose [Recovered/Resolved]

NARRATIVE: CASE EVENT DATE: 20171013
